FAERS Safety Report 5390453-7 (Version None)
Quarter: 2007Q3

REPORT INFORMATION
  Report Type: 
  Country: None (occurrence: None)
  Receive Date: 20070718
  Receipt Date: 20070507
  Transmission Date: 20080115
  Serious: No
  Sender: FDA-Public Use
  Company Number: US-KINGPHARMUSA00001-K200700565

PATIENT

DRUGS (4)
  1. LEVOXYL [Suspect]
     Indication: THYROID DISORDER
     Dosage: 112 MCG, QD
     Route: 048
     Dates: start: 20020101, end: 20070401
  2. LEVOXYL [Suspect]
     Dosage: 100 MCG, UNK
     Dates: start: 20070401, end: 20070505
  3. LEVOXYL [Suspect]
     Dosage: 1/2 100 MCG TABLET
     Dates: start: 20070506
  4. LUNESTA [Concomitant]
     Indication: SLEEP DISORDER
     Dosage: UNK, PRN
     Route: 048

REACTIONS (3)
  - HYPERTHYROIDISM [None]
  - PSYCHOMOTOR HYPERACTIVITY [None]
  - TREMOR [None]
